FAERS Safety Report 14245280 (Version 1)
Quarter: 2017Q4

REPORT INFORMATION
  Report Type: Spontaneous
  Country: US (occurrence: US)
  Receive Date: 20171202
  Receipt Date: 20171202
  Transmission Date: 20180321
  Serious: No
  Sender: FDA-Public Use
  Company Number: US-ENDO PHARMACEUTICALS INC-2017-001063

PATIENT
  Age: 52 Year
  Sex: Male
  Weight: 84.81 kg

DRUGS (4)
  1. XIAFLEX [Suspect]
     Active Substance: COLLAGENASE CLOSTRIDIUM HISTOLYTICUM
     Indication: PEYRONIE^S DISEASE
     Dosage: 1ST CYCLE 1ST INJECTION
     Route: 026
     Dates: start: 20160809
  2. XIAFLEX [Suspect]
     Active Substance: COLLAGENASE CLOSTRIDIUM HISTOLYTICUM
     Dosage: 1ST CYCLE 2ND INJECTION
     Route: 026
     Dates: start: 20160811
  3. XIAFLEX [Suspect]
     Active Substance: COLLAGENASE CLOSTRIDIUM HISTOLYTICUM
     Dosage: 2ND CYCLE 1ST INJECTION
     Route: 026
     Dates: start: 20161024
  4. XIAFLEX [Suspect]
     Active Substance: COLLAGENASE CLOSTRIDIUM HISTOLYTICUM
     Dosage: 2ND CYCLE 2ND INJECTION
     Route: 026
     Dates: start: 20161026, end: 20161026

REACTIONS (7)
  - Rash [Recovered/Resolved]
  - Penile contusion [Recovered/Resolved]
  - Skin exfoliation [Unknown]
  - Penile haematoma [Unknown]
  - Skin haemorrhage [Unknown]
  - Skin irritation [Unknown]
  - Penile swelling [Recovered/Resolved]

NARRATIVE: CASE EVENT DATE: 20161027
